FAERS Safety Report 10948407 (Version 2)
Quarter: 2015Q2

REPORT INFORMATION
  Report Type: Report from Study
  Country: BR (occurrence: BR)
  Receive Date: 20150324
  Receipt Date: 20150629
  Transmission Date: 20150821
  Serious: Yes (Other)
  Sender: FDA-Public Use
  Company Number: BR-JNJFOC-20150217188

PATIENT
  Age: 72 Year
  Sex: Male
  Weight: 50.8 kg

DRUGS (13)
  1. ZOLADEX [Concomitant]
     Active Substance: GOSERELIN ACETATE
     Indication: PROSTATE CANCER
     Route: 058
  2. PARACETAMOL [Concomitant]
     Active Substance: ACETAMINOPHEN
     Indication: UPPER RESPIRATORY TRACT INFECTION
     Route: 048
  3. RESFENOL [Concomitant]
     Indication: UPPER RESPIRATORY TRACT INFECTION
     Route: 048
  4. ABIRATERONE ACETATE [Suspect]
     Active Substance: ABIRATERONE ACETATE
     Indication: PROSTATE CANCER
     Route: 048
     Dates: start: 20140326, end: 20150115
  5. CODEINE [Concomitant]
     Active Substance: CODEINE
     Indication: PELVIC PAIN
     Route: 048
  6. ABIRATERONE ACETATE [Suspect]
     Active Substance: ABIRATERONE ACETATE
     Route: 048
  7. PREDNISONE. [Suspect]
     Active Substance: PREDNISONE
     Indication: PROSTATE CANCER
     Route: 048
     Dates: start: 20140326, end: 20150115
  8. DIPYRONE [Concomitant]
     Active Substance: DIPYRONE
     Indication: UPPER RESPIRATORY TRACT INFECTION
     Dosage: 40 DROPS A DAY
     Route: 048
  9. DIPYRONE [Concomitant]
     Active Substance: DIPYRONE
     Indication: UPPER RESPIRATORY TRACT INFECTION
     Dosage: 40 DROPS A DAY
     Route: 048
  10. DIPYRONE [Concomitant]
     Active Substance: DIPYRONE
     Indication: UPPER RESPIRATORY TRACT INFECTION
     Dosage: 35 DROPS ONCE A DAY
     Route: 048
  11. POLARAMIN [Concomitant]
     Active Substance: DEXCHLORPHENIRAMINE MALEATE
     Indication: UPPER RESPIRATORY TRACT INFECTION
     Route: 048
  12. DIPIRONA [Concomitant]
     Active Substance: METAMIZOLE
     Indication: UPPER RESPIRATORY TRACT INFECTION
     Dosage: 35 DROPA A DAY
     Route: 048
  13. CAPTOPRIL. [Concomitant]
     Active Substance: CAPTOPRIL
     Indication: HYPERTENSION
     Route: 048

REACTIONS (1)
  - Glaucoma [Recovered/Resolved]

NARRATIVE: CASE EVENT DATE: 20150111
